FAERS Safety Report 4265677-2 (Version None)
Quarter: 2004Q1

REPORT INFORMATION
  Report Type: 
  Country: None (occurrence: None)
  Receive Date: 20040107
  Receipt Date: 20031224
  Transmission Date: 20041129
  Serious: Yes (Hospitalization)
  Sender: FDA-Public Use
  Company Number: TW-GLAXOSMITHKLINE-B0318502A

PATIENT
  Age: 34 Year
  Sex: Female

DRUGS (2)
  1. SERETIDE [Suspect]
     Indication: ASTHMA
     Dates: start: 20021025, end: 20031224
  2. FLUTICASONE PROPIONATE [Suspect]
     Indication: ASTHMA
     Dates: start: 20021025, end: 20031224

REACTIONS (4)
  - CONCUSSION [None]
  - HAEMORRHAGE INTRACRANIAL [None]
  - HEAD INJURY [None]
  - ROAD TRAFFIC ACCIDENT [None]
